FAERS Safety Report 11520542 (Version 5)
Quarter: 2015Q4

REPORT INFORMATION
  Report Type: Spontaneous
  Country: US (occurrence: US)
  Receive Date: 20150918
  Receipt Date: 20151113
  Transmission Date: 20160304
  Serious: Yes (Other)
  Sender: FDA-Public Use
  Company Number: US-PFIZER INC-2015302351

PATIENT
  Age: 74 Year
  Sex: Female
  Weight: 72.11 kg

DRUGS (28)
  1. FLONASE [Concomitant]
     Active Substance: FLUTICASONE PROPIONATE
     Indication: NASAL DISORDER
  2. SODIUM CHLORIDE. [Concomitant]
     Active Substance: SODIUM CHLORIDE
     Indication: BRONCHIECTASIS
     Dosage: 3 ML, 2X/DAY (NEBULIZE 3 ML SOLUTION, AS PRESCRIBED)
  3. SYNTHROID [Concomitant]
     Active Substance: LEVOTHYROXINE SODIUM
     Dosage: 100 ?G, UNK, IN A.M.
  4. MIACALCIN [Concomitant]
     Active Substance: CALCITONIN SALMON
     Indication: OSTEOPOROSIS
     Dosage: 200 MG, 1X/DAY
     Route: 055
  5. FLONASE [Concomitant]
     Active Substance: FLUTICASONE PROPIONATE
     Indication: HYPERSENSITIVITY
  6. IPRATROPIUM [Concomitant]
     Active Substance: IPRATROPIUM
     Indication: WHEEZING
     Dosage: 2.5 ML, 4X/DAY (AS NEEDED, AS PRESCRIBED)
     Route: 055
  7. METANX [Concomitant]
     Active Substance: LEVOMEFOLATE CALCIUM\METHYLCOBALAMIN\PYRIDOXAL PHOSPHATE ANHYDROUS
     Dosage: 1 DF, 1X/DAY (EVERY EVENING, AS PRESCRIBED)
     Route: 048
  8. ATROVENT [Concomitant]
     Active Substance: IPRATROPIUM BROMIDE
     Dosage: 2 DF, 3X/DAY (AS PRESCRIBED)
     Route: 055
  9. XOPENEX HFA [Concomitant]
     Active Substance: LEVALBUTEROL TARTRATE
     Indication: DYSPNOEA
     Dosage: 2 DF, AS NEEDED  (EVERY 4 HOURS, AS PRESCRIBED USE WITH SPACER CHAMBER)
     Route: 055
  10. GLUCOSAMINE + CHONDROITIN WITH MSM [Concomitant]
     Dosage: 1 DF, 1X/DAY (AS PRESCRIBED)
     Route: 048
  11. CLONAZEPAM. [Concomitant]
     Active Substance: CLONAZEPAM
     Dosage: 0.5 MG, AS NEEDED (AS PRESCRIBED)
     Route: 048
  12. LEVOTHYROXINE. [Concomitant]
     Active Substance: LEVOTHYROXINE
     Dosage: 1/2 TABLET AND 1/2 TABLET EVERY SUNDAY, AS PRESCRIBED
     Route: 048
  13. SUCRALFATE. [Concomitant]
     Active Substance: SUCRALFATE
     Dosage: 1 G, 4X/DAY (AS PRESCRIBED)
     Route: 048
  14. COZEPAM [Concomitant]
     Indication: SLEEP DISORDER
     Dosage: 0.5 MG, AS NEEDED
     Route: 048
  15. VFEND [Suspect]
     Active Substance: VORICONAZOLE
     Indication: ASPERGILLUS INFECTION
     Dosage: 200 MG, 2X/DAY
     Route: 048
     Dates: start: 20150831
  16. TESSALON [Concomitant]
     Active Substance: BENZONATATE
     Indication: COUGH
     Dosage: 100 MG, 3X/DAY, (AS NEEDED)
     Route: 048
  17. CALCIUM 600+D [Concomitant]
     Active Substance: CALCIUM\VITAMIN D
     Dosage: 2 DF, 1X/DAY
     Route: 048
  18. XOPENEX HFA [Concomitant]
     Active Substance: LEVALBUTEROL TARTRATE
     Indication: WHEEZING
  19. VFEND [Suspect]
     Active Substance: VORICONAZOLE
     Indication: FUNGAL INFECTION
  20. VFEND [Suspect]
     Active Substance: VORICONAZOLE
     Indication: LUNG INFECTION
  21. VITAMIN C [Concomitant]
     Active Substance: ASCORBIC ACID
     Dosage: 500 MG, 1X/DAY
     Route: 048
  22. GLUCOSAMINE + CHONDROITIN WITH MSM [Concomitant]
     Dosage: UNK(LIQUID 10 OUNCE), 1X/DAY
  23. FLONASE [Concomitant]
     Active Substance: FLUTICASONE PROPIONATE
     Indication: NASAL CONGESTION
     Dosage: 2 DF, 1X/DAY (AS NEEDED, AS PRESCRIBED)
     Route: 055
  24. XOPENEX [Concomitant]
     Active Substance: LEVALBUTEROL HYDROCHLORIDE
     Indication: WHEEZING
  25. CULTURELLE [Concomitant]
     Active Substance: LACTOBACILLUS RHAMNOSUS
     Dosage: 1 DF, 1X/DAY (AS PRESCRIBED)
     Route: 048
  26. GUAIFENESIN. [Concomitant]
     Active Substance: GUAIFENESIN
     Indication: COUGH
     Dosage: 10 ML, 4X/DAY (AS PRESCRIBED: NOT TO EXCEED 2.4 GRAMS/DAY WITH FLUIDS)
     Route: 048
  27. XOPENEX [Concomitant]
     Active Substance: LEVALBUTEROL HYDROCHLORIDE
     Indication: DYSPNOEA
     Dosage: 3 ML, 3X/DAY, (USE WITH NEBULIZER, AS PRESCRIBED)
     Route: 055
  28. VITAMIN D [Concomitant]
     Active Substance: CHOLECALCIFEROL
     Dosage: 600 MG, 2X/DAY

REACTIONS (7)
  - Headache [Recovered/Resolved]
  - Oral pain [Unknown]
  - Hallucination, visual [Recovered/Resolved]
  - Hyperhidrosis [Not Recovered/Not Resolved]
  - Urinary tract infection [Unknown]
  - Chapped lips [Unknown]
  - Dyspnoea [Unknown]

NARRATIVE: CASE EVENT DATE: 20150831
